FAERS Safety Report 8169833-2 (Version None)
Quarter: 2012Q1

REPORT INFORMATION
  Report Type: 
  Country: None (occurrence: None)
  Receive Date: 20120228
  Receipt Date: 20120220
  Transmission Date: 20120608
  Serious: Yes (Other)
  Sender: FDA-Public Use
  Company Number: US-UCBSA-051971

PATIENT
  Age: 86 Year
  Sex: Female
  Weight: 46.7 kg

DRUGS (3)
  1. KEPPRA XR [Suspect]
     Indication: ELECTROENCEPHALOGRAM ABNORMAL
     Route: 048
  2. LISINOPRIL [Concomitant]
     Indication: HYPERTENSION
     Route: 048
     Dates: start: 20070101
  3. ZOCOR [Concomitant]
     Indication: BLOOD CHOLESTEROL INCREASED
     Route: 048
     Dates: start: 20070101

REACTIONS (1)
  - HEPATIC NEOPLASM [None]
